FAERS Safety Report 19550139 (Version 1)
Quarter: 2021Q3

REPORT INFORMATION
  Report Type: Spontaneous
  Country: US (occurrence: US)
  Receive Date: 20210715
  Receipt Date: 20210715
  Transmission Date: 20211014
  Serious: Yes (Other)
  Sender: FDA-Public Use
  Company Number: None

PATIENT
  Age: 28 Year
  Sex: Female

DRUGS (1)
  1. LIDOCAINE OINTMENT [Suspect]
     Active Substance: LIDOCAINE
     Indication: PROPHYLAXIS AGAINST SOLAR RADIATION

REACTIONS (1)
  - Rash [None]

NARRATIVE: CASE EVENT DATE: 20210525
